FAERS Safety Report 21545731 (Version 1)
Quarter: 2022Q4

REPORT INFORMATION
  Report Type: Spontaneous
  Country: CA (occurrence: CA)
  Receive Date: 20221103
  Receipt Date: 20221103
  Transmission Date: 20230112
  Serious: Yes (Hospitalization, Other)
  Sender: FDA-Public Use
  Company Number: CA-JNJFOC-20221058057

PATIENT
  Sex: Female
  Weight: 81 kg

DRUGS (5)
  1. ACETAMINOPHEN [Suspect]
     Active Substance: ACETAMINOPHEN
     Indication: Premedication
     Route: 048
  2. OGIVRI [Suspect]
     Active Substance: TRASTUZUMAB-DKST
     Indication: Breast cancer metastatic
     Route: 042
  3. OGIVRI [Suspect]
     Active Substance: TRASTUZUMAB-DKST
     Route: 042
  4. OGIVRI [Suspect]
     Active Substance: TRASTUZUMAB-DKST
     Route: 042
  5. OGIVRI [Suspect]
     Active Substance: TRASTUZUMAB-DKST
     Route: 042

REACTIONS (4)
  - Dyspnoea [Recovered/Resolved]
  - Lower respiratory tract infection [Recovered/Resolved]
  - Pneumonia [Recovered/Resolved]
  - Pyrexia [Recovered/Resolved]
